FAERS Safety Report 9970309 (Version 3)
Quarter: 2015Q3

REPORT INFORMATION
  Report Type: Spontaneous
  Country: None (occurrence: None)
  Receive Date: 20140304
  Receipt Date: 20141222
  Transmission Date: 20151125
  Serious: Yes (Other)
  Sender: FDA-Public Use
  Company Number: 171347-2014-99913

PATIENT
  Age: 67 Year
  Sex: Female
  Weight: 68.1 kg

DRUGS (4)
  1. DELFLEX WITH DEXTROSE 2.5% LOW MAGNESIUM LOW CALCIUM [Suspect]
     Active Substance: CALCIUM CHLORIDE\DEXTROSE MONOHYDRATE\MAGNESIUM CHLORIDE\SODIUM CHLORIDE\SODIUM LACTATE
     Indication: DIALYSIS
     Route: 033
  2. PHOSLO [Concomitant]
     Active Substance: CALCIUM ACETATE
  3. DELFLEX WITH DEXTROSE 2.5% LOW MAGNESIUM LOW CALCIUM [Suspect]
     Active Substance: CALCIUM CHLORIDE\DEXTROSE MONOHYDRATE\MAGNESIUM CHLORIDE\SODIUM CHLORIDE\SODIUM LACTATE
     Indication: RENAL FAILURE
     Route: 033
  4. CALCITROL [Concomitant]
     Active Substance: CALCITRIOL

REACTIONS (3)
  - Peritoneal effluent leukocyte count increased [None]
  - Abdominal discomfort [None]
  - Peritonitis [None]

NARRATIVE: CASE EVENT DATE: 20140107
